FAERS Safety Report 6976302-1 (Version None)
Quarter: 2010Q3

REPORT INFORMATION
  Report Type: 
  Country: None (occurrence: None)
  Receive Date: 20100910
  Receipt Date: 20090417
  Transmission Date: 20110219
  Serious: No
  Sender: FDA-Public Use
  Company Number: US-WYE-H09026309

PATIENT
  Sex: Female
  Weight: 63.11 kg

DRUGS (15)
  1. PRISTIQ [Suspect]
     Indication: BIPOLAR DISORDER
     Route: 048
     Dates: start: 20090320
  2. PRISTIQ [Suspect]
     Indication: DEPRESSED MOOD
  3. FIORINAL [Concomitant]
  4. LASIX [Concomitant]
  5. TOPAMAX [Concomitant]
  6. VOLTAREN-XR [Concomitant]
  7. METOCLOPRAMIDE [Concomitant]
  8. CLARITIN-D [Concomitant]
  9. NASONEX [Concomitant]
  10. PATANOL [Concomitant]
  11. MAXITROL [Concomitant]
  12. LAMOTRIGINE [Concomitant]
  13. ALPRAZOLAM [Concomitant]
  14. KADIAN [Concomitant]
  15. CARAFATE [Concomitant]

REACTIONS (1)
  - UNEVALUABLE EVENT [None]
